FAERS Safety Report 4320463-X (Version None)
Quarter: 2004Q1

REPORT INFORMATION
  Report Type: 
  Country: None (occurrence: None)
  Receive Date: 20040309
  Receipt Date: 20040309
  Transmission Date: 20041129
  Serious: No
  Sender: FDA-Public Use
  Company Number: None

PATIENT
  Sex: 0

DRUGS (1)
  1. ZOLOFT [Suspect]
     Indication: DEPRESSION
     Dosage: 50 MG ONCE A DAY ORAL
     Route: 048
     Dates: start: 20030101, end: 20030314

REACTIONS (7)
  - ANXIETY [None]
  - DIARRHOEA [None]
  - DISTURBANCE IN ATTENTION [None]
  - IMPAIRED WORK ABILITY [None]
  - IRRITABILITY [None]
  - NAUSEA [None]
  - VERTIGO [None]
